FAERS Safety Report 7412598-X (Version None)
Quarter: 2011Q2

REPORT INFORMATION
  Report Type: 
  Country: None (occurrence: None)
  Receive Date: 20110413
  Receipt Date: 20110406
  Transmission Date: 20111010
  Serious: Yes (Death)
  Sender: FDA-Public Use
  Company Number: US-JNJFOC-20110404428

PATIENT
  Age: 5 Decade
  Sex: Male

DRUGS (3)
  1. NUCYNTA [Suspect]
     Indication: BREAKTHROUGH PAIN
     Dosage: AS NEEDED
     Route: 048
  2. DIABETES MEDICATION [Concomitant]
     Indication: DIABETES MELLITUS
     Route: 065
  3. DURAGESIC [Suspect]
     Indication: PAIN
     Route: 062

REACTIONS (2)
  - PRODUCT QUALITY ISSUE [None]
  - TOXICITY TO VARIOUS AGENTS [None]
